FAERS Safety Report 5765751-5 (Version None)
Quarter: 2008Q2

REPORT INFORMATION
  Report Type: 
  Country: None (occurrence: None)
  Receive Date: 20080611
  Receipt Date: 20080605
  Transmission Date: 20081010
  Serious: Yes (Congenital Anomaly)
  Sender: FDA-Public Use
  Company Number: JP-ABBOTT-08P-087-0455104-00

PATIENT
  Sex: Male
  Weight: 2.35 kg

DRUGS (2)
  1. CEFZON [Suspect]
     Indication: DRUG EXPOSURE DURING PREGNANCY
     Route: 064
  2. CEFAZOLIN [Suspect]
     Indication: DRUG EXPOSURE DURING PREGNANCY
     Route: 064

REACTIONS (2)
  - DRUG EXPOSURE DURING PREGNANCY [None]
  - OESOPHAGEAL ATRESIA [None]
